FAERS Safety Report 14624072 (Version 1)
Quarter: 2018Q1

REPORT INFORMATION
  Report Type: Spontaneous
  Country: US (occurrence: US)
  Receive Date: 20180312
  Receipt Date: 20180312
  Transmission Date: 20180509
  Serious: Yes (Hospitalization, Other)
  Sender: FDA-Public Use
  Company Number: US-UNITED THERAPEUTICS-UNT-2018-003017

PATIENT
  Age: 49 Year
  Sex: Female

DRUGS (6)
  1. AMBRISENTAN [Concomitant]
     Active Substance: AMBRISENTAN
     Indication: PULMONARY HYPERTENSION
     Dosage: 5 MG, QD
     Route: 065
     Dates: start: 20120726
  2. REMODULIN [Suspect]
     Active Substance: TREPROSTINIL
     Indication: PULMONARY ARTERIAL HYPERTENSION
     Dosage: 0.01196 ?G/KG, CONTINUING
     Route: 058
     Dates: start: 20171012
  3. AMBRISENTAN [Concomitant]
     Active Substance: AMBRISENTAN
     Dosage: 10 MG, QD
     Route: 065
  4. WARFARIN [Suspect]
     Active Substance: WARFARIN
     Indication: PRODUCT USED FOR UNKNOWN INDICATION
     Route: 065
  5. REMODULIN [Suspect]
     Active Substance: TREPROSTINIL
     Dosage: 0.002ML/HR(1-1.2NKM)
     Route: 058
  6. REMODULIN [Suspect]
     Active Substance: TREPROSTINIL
     Dosage: 0.010 UNK
     Route: 058

REACTIONS (1)
  - Haemoptysis [Unknown]

NARRATIVE: CASE EVENT DATE: 20180303
